FAERS Safety Report 6609849-8 (Version None)
Quarter: 2010Q1

REPORT INFORMATION
  Report Type: 
  Country: None (occurrence: None)
  Receive Date: 20100302
  Receipt Date: 20100219
  Transmission Date: 20100710
  Serious: Yes (Hospitalization)
  Sender: FDA-Public Use
  Company Number: PHHY2010TH09844

PATIENT
  Age: 40 Year
  Sex: Male

DRUGS (3)
  1. EXJADE [Suspect]
     Indication: THALASSAEMIA
     Dosage: 20 MG/KG
     Route: 048
     Dates: start: 20100204
  2. EXJADE [Suspect]
     Indication: IRON OVERLOAD
  3. FOLIC ACID [Concomitant]

REACTIONS (4)
  - ANGIOEDEMA [None]
  - EATING DISORDER [None]
  - HYPOGLYCAEMIA [None]
  - PRURITUS [None]
